FAERS Safety Report 7316477-8 (Version None)
Quarter: 2011Q1

REPORT INFORMATION
  Report Type: 
  Country: None (occurrence: None)
  Receive Date: 20110225
  Receipt Date: 20110216
  Transmission Date: 20110831
  Serious: Yes (Life-Threatening, Hospitalization, Other)
  Sender: FDA-Public Use
  Company Number: CA-BAYER-2011-015125

PATIENT
  Age: 67 Year
  Sex: Male

DRUGS (4)
  1. MULTI-VITAMINS [Concomitant]
  2. VITAMIN D [Concomitant]
  3. LEVITRA [Suspect]
     Indication: PRODUCT USED FOR UNKNOWN INDICATION
     Dosage: 10 MG, PRN
     Route: 048
  4. CALCIUM [Concomitant]

REACTIONS (3)
  - HEADACHE [None]
  - MYOCARDIAL INFARCTION [None]
  - THROMBOSIS [None]
